FAERS Safety Report 9093350 (Version 1)
Quarter: 2013Q1

REPORT INFORMATION
  Report Type: Spontaneous
  Country: US (occurrence: US)
  Receive Date: 20130131
  Receipt Date: 20130131
  Transmission Date: 20140127
  Serious: No
  Sender: FDA-Public Use
  Company Number: US-ABBOTT-12P-163-1015704-00

PATIENT
  Sex: Female
  Weight: 95.79 kg

DRUGS (3)
  1. HUMIRA [Suspect]
     Indication: CROHN^S DISEASE
     Route: 058
     Dates: start: 200911, end: 20121128
  2. ASACOL [Concomitant]
     Indication: CROHN^S DISEASE
  3. CANASA [Concomitant]
     Indication: CROHN^S DISEASE

REACTIONS (1)
  - Acne [Not Recovered/Not Resolved]
